FAERS Safety Report 5699685-1 (Version None)
Quarter: 2008Q2

REPORT INFORMATION
  Report Type: 
  Country: None (occurrence: None)
  Receive Date: 20080410
  Receipt Date: 20080401
  Transmission Date: 20081010
  Serious: Yes (Other)
  Sender: FDA-Public Use
  Company Number: PHHY2008IE04595

PATIENT
  Sex: Female

DRUGS (2)
  1. ZOMETA [Suspect]
     Dates: end: 20071001
  2. OPIOIDS [Concomitant]

REACTIONS (2)
  - DENTAL TREATMENT [None]
  - OSTEONECROSIS [None]
